FAERS Safety Report 9969921 (Version 1)
Quarter: 2014Q1

REPORT INFORMATION
  Report Type: Spontaneous
  Country: US (occurrence: US)
  Receive Date: 20140306
  Receipt Date: 20140306
  Transmission Date: 20141002
  Serious: No
  Sender: FDA-Public Use
  Company Number: US-SANOFI-AVENTIS-2013SA025688

PATIENT
  Age: 85 Year
  Sex: Male

DRUGS (1)
  1. GAVISCON [Suspect]
     Indication: ULCER
     Dates: start: 20130227

REACTIONS (1)
  - Vomiting [Unknown]
